FAERS Safety Report 9071408 (Version 1)
Quarter: 2013Q1

REPORT INFORMATION
  Report Type: Spontaneous
  Country: US (occurrence: US)
  Receive Date: 20130206
  Receipt Date: 20130206
  Transmission Date: 20140127
  Serious: No
  Sender: FDA-Public Use
  Company Number: US-ALLERGAN-1211245US

PATIENT
  Age: 54 Year
  Sex: Female

DRUGS (3)
  1. RESTASIS? [Suspect]
     Indication: DRY EYE
     Dosage: UNK, QHS
     Route: 047
     Dates: start: 20121210
  2. RESTASIS? [Suspect]
     Dosage: UNK, QHS
     Route: 047
     Dates: start: 2012, end: 20121207
  3. RESTASIS? [Suspect]
     Dosage: UNK UNK, BID
     Route: 047
     Dates: start: 20120626

REACTIONS (10)
  - Glaucoma [Not Recovered/Not Resolved]
  - Retinal disorder [Not Recovered/Not Resolved]
  - Intraocular pressure increased [Recovering/Resolving]
  - Inappropriate schedule of drug administration [Unknown]
  - Eye irritation [Not Recovered/Not Resolved]
  - Photophobia [Recovering/Resolving]
  - Drug ineffective [Unknown]
  - Vision blurred [Recovering/Resolving]
  - Eye pruritus [Recovering/Resolving]
  - Therapeutic response unexpected [Unknown]
